FAERS Safety Report 11098389 (Version 1)
Quarter: 2015Q2

REPORT INFORMATION
  Report Type: Report from Study
  Country: CA (occurrence: CA)
  Receive Date: 20150507
  Receipt Date: 20150507
  Transmission Date: 20150821
  Serious: Yes (Death)
  Sender: FDA-Public Use
  Company Number: PHHY2015CA054718

PATIENT
  Age: 76 Year
  Sex: Male

DRUGS (1)
  1. SANDOSTATIN [Suspect]
     Active Substance: OCTREOTIDE ACETATE
     Indication: GASTROINTESTINAL NEOPLASM
     Dosage: 300 UG, BID
     Route: 058
     Dates: start: 20150423

REACTIONS (1)
  - Death [Fatal]

NARRATIVE: CASE EVENT DATE: 20150504
